FAERS Safety Report 20651828 (Version 1)
Quarter: 2022Q1

REPORT INFORMATION
  Report Type: Other
  Country: HK (occurrence: None)
  Receive Date: 20220330
  Receipt Date: 20220330
  Transmission Date: 20220424
  Serious: Yes (Death, Other)
  Sender: FDA-Public Use
  Company Number: HK-Saptalis Pharmaceuticals,LLC-000198

PATIENT
  Age: 59 Year
  Sex: Male

DRUGS (1)
  1. METFORMIN [Suspect]
     Active Substance: METFORMIN HYDROCHLORIDE
     Indication: Diabetes mellitus

REACTIONS (2)
  - Neurological symptom [Fatal]
  - Sudden death [Fatal]
